FAERS Safety Report 10365861 (Version 3)
Quarter: 2014Q3

REPORT INFORMATION
  Report Type: Spontaneous
  Country: US (occurrence: US)
  Receive Date: 20140806
  Receipt Date: 20140808
  Transmission Date: 20150326
  Serious: Yes (Other)
  Sender: FDA-Public Use
  Company Number: US-RB-067566-14

PATIENT
  Age: 43 Year
  Sex: Female
  Weight: 65 kg

DRUGS (1)
  1. CLEARASIL ULTRA RAPID ACTION PADS [Suspect]
     Active Substance: SALICYLIC ACID
     Indication: ACNE
     Dosage: USED ONCE IN A WHILE, USING LAST ON 14-JUN-2014.
     Route: 061
     Dates: end: 20140614

REACTIONS (4)
  - Burns third degree [Recovered/Resolved]
  - Application site discolouration [Not Recovered/Not Resolved]
  - Scab [Recovered/Resolved]
  - Scar [Not Recovered/Not Resolved]

NARRATIVE: CASE EVENT DATE: 20140614
